FAERS Safety Report 4542979-3 (Version None)
Quarter: 2004Q4

REPORT INFORMATION
  Report Type: 
  Country: None (occurrence: None)
  Receive Date: 20041223
  Receipt Date: 20041208
  Transmission Date: 20050328
  Serious: Yes (Life-Threatening, Hospitalization)
  Sender: FDA-Public Use
  Company Number: THYM-10237

PATIENT
  Age: 65 Year
  Sex: Male
  Weight: 109 kg

DRUGS (7)
  1. THYMOGLOBULIN [Suspect]
     Indication: RENAL TRANSPLANT
     Dosage: 150 MG QD IV
     Route: 042
     Dates: start: 20040701, end: 20040702
  2. CELLCEPT [Concomitant]
  3. MORPHINE [Concomitant]
  4. PROTONIX [Concomitant]
  5. VALCYTE [Concomitant]
  6. NILSTAT [Concomitant]
  7. LOPRESSOR [Concomitant]

REACTIONS (8)
  - DISEASE RECURRENCE [None]
  - EMOTIONAL DISTRESS [None]
  - HYPOXIA [None]
  - MYOCARDIAL INFARCTION [None]
  - MYOCARDIAL ISCHAEMIA [None]
  - POST PROCEDURAL COMPLICATION [None]
  - PULMONARY OEDEMA [None]
  - WHEEZING [None]
